FAERS Safety Report 5209399-X (Version None)
Quarter: 2006Q4

REPORT INFORMATION
  Report Type: 
  Country: None (occurrence: None)
  Receive Date: 20061101
  Receipt Date: 20060702
  Transmission Date: 20070319
  Serious: No
  Sender: FDA-Public Use
  Company Number: 2006PV016896

PATIENT
  Age: 42 Year
  Sex: Female

DRUGS (3)
  1. SYMLIN [Suspect]
     Indication: DIABETES MELLITUS NON-INSULIN-DEPENDENT
     Dosage: SEE IMAGE
     Route: 058
     Dates: start: 20060423, end: 20060430
  2. SYMLIN [Suspect]
     Indication: DIABETES MELLITUS NON-INSULIN-DEPENDENT
     Dosage: SEE IMAGE
     Route: 058
     Dates: start: 20060501
  3. HUMALOG [Concomitant]

REACTIONS (5)
  - BLOOD GLUCOSE INCREASED [None]
  - NASOPHARYNGITIS [None]
  - NAUSEA [None]
  - PRURITUS GENERALISED [None]
  - WEIGHT DECREASED [None]
